FAERS Safety Report 6565046-6 (Version None)
Quarter: 2010Q1

REPORT INFORMATION
  Report Type: 
  Country: None (occurrence: None)
  Receive Date: 20100201
  Receipt Date: 20100129
  Transmission Date: 20100710
  Serious: Yes (Other)
  Sender: FDA-Public Use
  Company Number: A0841830A

PATIENT
  Age: 51 Year
  Sex: Female
  Weight: 134.1 kg

DRUGS (6)
  1. ALLI [Suspect]
     Route: 048
     Dates: start: 20091101, end: 20100125
  2. ATENOLOL [Concomitant]
     Dosage: 50MG TWICE PER DAY
     Route: 048
  3. UNKNOWN [Concomitant]
     Dosage: 50MG PER DAY
  4. AMITRIPTYLINE HCL [Concomitant]
     Route: 048
  5. ALPRAZOLAM [Concomitant]
     Dosage: .5MG AT NIGHT
     Route: 048
  6. HYDROCHLOROTHIAZIDE [Concomitant]

REACTIONS (3)
  - BLOOD GLUCOSE INCREASED [None]
  - DIABETES MELLITUS [None]
  - HAEMOGLOBIN ABNORMAL [None]
